FAERS Safety Report 13030439 (Version 1)
Quarter: 2016Q4

REPORT INFORMATION
  Report Type: Spontaneous
  Country: US (occurrence: US)
  Receive Date: 20161215
  Receipt Date: 20161215
  Transmission Date: 20170207
  Serious: No
  Sender: FDA-Public Use
  Company Number: US-INCYTE CORPORATION-2016IN007852

PATIENT
  Age: 67 Year
  Sex: Male

DRUGS (1)
  1. JAKAFI [Suspect]
     Active Substance: RUXOLITINIB
     Indication: MYELOFIBROSIS
     Dosage: 10 MG, BID
     Route: 048
     Dates: start: 20160530

REACTIONS (5)
  - Diarrhoea [Unknown]
  - Influenza like illness [Unknown]
  - Pyrexia [Unknown]
  - Contusion [Unknown]
  - Chills [Unknown]

NARRATIVE: CASE EVENT DATE: 20161124
